FAERS Safety Report 4362677-9 (Version None)
Quarter: 2004Q2

REPORT INFORMATION
  Report Type: 
  Country: None (occurrence: None)
  Receive Date: 20040517
  Receipt Date: 20040507
  Transmission Date: 20050107
  Serious: No
  Sender: FDA-Public Use
  Company Number: 04H-087-0260076-00

PATIENT
  Age: 23 Year
  Sex: Female
  Weight: 68 kg

DRUGS (1)
  1. RITODRINE HCL [Suspect]
     Indication: PREMATURE LABOUR
     Dosage: CONTINUOUS IV
     Route: 042
     Dates: start: 19960727, end: 19960729

REACTIONS (2)
  - CARDIAC FAILURE ACUTE [None]
  - MYOCARDIAL INFARCTION [None]
